FAERS Safety Report 8387588-3 (Version None)
Quarter: 2012Q2

REPORT INFORMATION
  Report Type: 
  Country: None (occurrence: None)
  Receive Date: 20120525
  Receipt Date: 20120523
  Transmission Date: 20120825
  Serious: Yes (Death, Other)
  Sender: FDA-Public Use
  Company Number: PHHY2011CR85458

PATIENT
  Age: 84 Year
  Sex: Female

DRUGS (1)
  1. EXELON [Suspect]
     Indication: DEMENTIA ALZHEIMER'S TYPE
     Dosage: 1.5 MG, Q12H

REACTIONS (3)
  - ALTERED STATE OF CONSCIOUSNESS [None]
  - PNEUMONIA [None]
  - DEATH [None]
